FAERS Safety Report 5877495-X (Version None)
Quarter: 2008Q3

REPORT INFORMATION
  Report Type: 
  Country: None (occurrence: None)
  Receive Date: 20080909
  Receipt Date: 20080828
  Transmission Date: 20090109
  Serious: Yes (Hospitalization)
  Sender: FDA-Public Use
  Company Number: PAR_02327_2008

PATIENT
  Sex: Female

DRUGS (2)
  1. MEGESTROL ACETATE [Suspect]
     Indication: DECREASED APPETITE
     Dosage: (DF)
  2. MEGESTROL ACETATE [Suspect]
     Indication: WEIGHT DECREASED
     Dosage: (DF)

REACTIONS (1)
  - DEEP VEIN THROMBOSIS [None]
